FAERS Safety Report 6871054-8 (Version None)
Quarter: 2010Q3

REPORT INFORMATION
  Report Type: 
  Country: None (occurrence: None)
  Receive Date: 20100723
  Receipt Date: 20100712
  Transmission Date: 20110219
  Serious: Yes (Hospitalization, Other)
  Sender: FDA-Public Use
  Company Number: US-PFIZER INC-2010024800

PATIENT
  Sex: Female

DRUGS (5)
  1. CHANTIX [Suspect]
     Indication: SMOKING CESSATION THERAPY
     Dosage: 0.5 MG, 1X/DAY
     Route: 048
     Dates: start: 20070309, end: 20070101
  2. CHANTIX [Suspect]
     Dosage: 0.5 MG, 2X/DAY
     Dates: start: 20070101, end: 20070101
  3. CHANTIX [Suspect]
     Dosage: 1 MG, 2X/DAY
     Dates: start: 20070101, end: 20070101
  4. ALBUTEROL [Concomitant]
     Dosage: UNK
     Dates: start: 20040101, end: 20080401
  5. PROMETHAZINE W/ CODEINE [Concomitant]
     Indication: COUGH
     Dosage: UNK
     Dates: start: 20040101, end: 20080401

REACTIONS (6)
  - ADJUSTMENT DISORDER [None]
  - ANXIETY DISORDER [None]
  - DEPRESSION [None]
  - OVERDOSE [None]
  - PANIC DISORDER [None]
  - SUICIDE ATTEMPT [None]
